FAERS Safety Report 12520925 (Version 1)
Quarter: 2016Q2

REPORT INFORMATION
  Report Type: Spontaneous
  Country: US (occurrence: None)
  Receive Date: 20160630
  Receipt Date: 20160630
  Transmission Date: 20160815
  Serious: Yes (Other)
  Sender: FDA-Public Use
  Company Number: None

PATIENT
  Age: 53 Year
  Sex: Female
  Weight: 52.16 kg

DRUGS (4)
  1. METHYLPREDNISOLONE PAK 4MG [Suspect]
     Active Substance: METHYLPREDNISOLONE
     Indication: RASH
     Dosage: 4MG 2 PILL FIRST DAY  2 PILLS SECOND DAY 1 PILLS A DAY  1 PILL A DAY
     Route: 048
     Dates: start: 20160229, end: 20160303
  2. ASSURED BODY POWDER MEDICATED [Concomitant]
  3. TRIAMCINOLONE [Concomitant]
     Active Substance: TRIAMCINOLONE
  4. ZYRTEC [Concomitant]
     Active Substance: CETIRIZINE HYDROCHLORIDE

REACTIONS (3)
  - Diarrhoea [None]
  - Vitiligo [None]
  - Dehydration [None]

NARRATIVE: CASE EVENT DATE: 20160306
